FAERS Safety Report 23618866 (Version 1)
Quarter: 2024Q1

REPORT INFORMATION
  Report Type: Spontaneous
  Country: DE (occurrence: DE)
  Receive Date: 20240311
  Receipt Date: 20240311
  Transmission Date: 20240409
  Serious: Yes (Other)
  Sender: FDA-Public Use
  Company Number: DE-EMBRYOTOX-202304089-B

PATIENT
  Age: 1 Day
  Sex: Male
  Weight: 3.665 kg

DRUGS (4)
  1. VENLAFAXINE [Suspect]
     Active Substance: VENLAFAXINE HYDROCHLORIDE
     Indication: Depression
     Dosage: 225 MILLIGRAM, QD (225 [MG/D])
     Route: 064
  2. MIRTAZAPINE [Suspect]
     Active Substance: MIRTAZAPINE
     Indication: Depression
     Dosage: QD (STARTED 7.5 MG/D, INCREASED TO 30 MG/D IN 2 WEEKS)
     Route: 064
  3. LITHIUM [Suspect]
     Active Substance: LITHIUM
     Indication: Bipolar disorder
     Dosage: 675 MILLIGRAM, QD (675 [MG/D])
     Route: 064
     Dates: start: 20221025, end: 20230708
  4. BOOSTRIX [Concomitant]
     Active Substance: TETANUS TOXOID, REDUCED DIPHTHERIA TOXOID AND ACELLULAR PERTUSSIS VACCINE, ADSORBED ANTIGENS
     Indication: Immunisation
     Dosage: UNK
     Route: 064

REACTIONS (5)
  - Respiratory disorder neonatal [Recovered/Resolved]
  - Atrial septal defect [Unknown]
  - Floppy infant [Recovered/Resolved]
  - Premature baby [Unknown]
  - Foetal exposure during pregnancy [Unknown]

NARRATIVE: CASE EVENT DATE: 20230701
